FAERS Safety Report 9455797 (Version 1)
Quarter: 2013Q3

REPORT INFORMATION
  Report Type: Spontaneous
  Country: US (occurrence: US)
  Receive Date: 20130813
  Receipt Date: 20130813
  Transmission Date: 20140515
  Serious: Yes (Other)
  Sender: FDA-Public Use
  Company Number: US-SANOFI-AVENTIS-2013SA080478

PATIENT
  Age: 52 Year
  Sex: Male

DRUGS (1)
  1. LANTUS [Suspect]
     Indication: TYPE 2 DIABETES MELLITUS
     Dosage: DOSE:300 UNIT(S)
     Route: 051
     Dates: start: 2007

REACTIONS (3)
  - Syncope [Unknown]
  - Vertigo [Unknown]
  - Malaise [Unknown]
